FAERS Safety Report 12460779 (Version 1)
Quarter: 2016Q2

REPORT INFORMATION
  Report Type: Not Available
  Country: US (occurrence: US)
  Receive Date: 20160613
  Receipt Date: 20160613
  Transmission Date: 20160815
  Serious: No
  Sender: FDA-Public Use
  Company Number: US-ANIPHARMA-2015-US-001377

PATIENT
  Sex: Female

DRUGS (6)
  1. PROPRANOLOL [Suspect]
     Active Substance: PROPRANOLOL\PROPRANOLOL HYDROCHLORIDE
     Dosage: UNKNOWN
     Route: 048
     Dates: start: 2005
  2. NORPACE [Concomitant]
     Active Substance: DISOPYRAMIDE PHOSPHATE
  3. MULTAQ [Concomitant]
     Active Substance: DRONEDARONE
  4. ATENOLOL. [Concomitant]
     Active Substance: ATENOLOL
     Dosage: 50 MG TWICE
     Route: 065
     Dates: start: 2001
  5. FLECAINIDE ACETATE (NON-SPECIFIC) [Concomitant]
     Active Substance: FLECAINIDE ACETATE
  6. VERAPAMIL [Concomitant]
     Active Substance: VERAPAMIL HYDROCHLORIDE
     Route: 065
     Dates: start: 2004

REACTIONS (2)
  - Drug ineffective for unapproved indication [Unknown]
  - Bradycardia [Unknown]
